FAERS Safety Report 19068899 (Version 1)
Quarter: 2021Q1

REPORT INFORMATION
  Report Type: Spontaneous
  Country: US (occurrence: US)
  Receive Date: 20210329
  Receipt Date: 20210329
  Transmission Date: 20210420
  Serious: Yes (Hospitalization)
  Sender: FDA-Public Use
  Company Number: None

PATIENT
  Age: 77 Year
  Sex: Male

DRUGS (1)
  1. APIXABAN (APIXABAN 2.5MG TAB [Suspect]
     Active Substance: APIXABAN
     Dates: start: 20210127

REACTIONS (2)
  - Intentional product use issue [None]
  - Haemoglobin decreased [None]

NARRATIVE: CASE EVENT DATE: 20210127
